FAERS Safety Report 6082908-7 (Version None)
Quarter: 2009Q1

REPORT INFORMATION
  Report Type: 
  Country: None (occurrence: None)
  Receive Date: 20090218
  Receipt Date: 20090209
  Transmission Date: 20090719
  Serious: Yes (Hospitalization, Other)
  Sender: FDA-Public Use
  Company Number: US-ABBOTT-09P-163-0502641-00

PATIENT
  Sex: Male
  Weight: 77.18 kg

DRUGS (3)
  1. HUMIRA [Suspect]
     Indication: CROHN'S DISEASE
     Route: 058
     Dates: start: 20080501
  2. BENTYL [Suspect]
     Indication: CROHN'S DISEASE
     Dates: end: 20080501
  3. LIALDA [Concomitant]
     Indication: CROHN'S DISEASE

REACTIONS (32)
  - ANAPHYLACTIC REACTION [None]
  - ANXIETY [None]
  - APPARENT DEATH [None]
  - BLOOD CREATINE PHOSPHOKINASE INCREASED [None]
  - CHEST DISCOMFORT [None]
  - CONFUSIONAL STATE [None]
  - DIARRHOEA [None]
  - DIZZINESS [None]
  - DYSPHAGIA [None]
  - DYSPNOEA [None]
  - FEELING ABNORMAL [None]
  - FLATULENCE [None]
  - HAEMOGLOBIN DECREASED [None]
  - HEADACHE [None]
  - HEPATIC ENZYME INCREASED [None]
  - INCREASED UPPER AIRWAY SECRETION [None]
  - MALAISE [None]
  - MENTAL IMPAIRMENT [None]
  - MIDDLE INSOMNIA [None]
  - MOBILITY DECREASED [None]
  - MUSCLE TWITCHING [None]
  - MUSCULOSKELETAL PAIN [None]
  - NECK PAIN [None]
  - NERVOUSNESS [None]
  - PAIN [None]
  - PALPITATIONS [None]
  - PHARYNGITIS STREPTOCOCCAL [None]
  - PYREXIA [None]
  - RHABDOMYOLYSIS [None]
  - SENSORY DISTURBANCE [None]
  - STREPTOCOCCAL INFECTION [None]
  - TREMOR [None]
